FAERS Safety Report 4679038-5 (Version None)
Quarter: 2005Q2

REPORT INFORMATION
  Report Type: 
  Country: None (occurrence: None)
  Receive Date: 20050527
  Receipt Date: 20050513
  Transmission Date: 20051028
  Serious: Yes (Hospitalization)
  Sender: FDA-Public Use
  Company Number: 2004240541US

PATIENT
  Age: 64 Year
  Sex: Female
  Weight: 79.37 kg

DRUGS (7)
  1. BEXTRA [Suspect]
     Indication: MUSCULOSKELETAL STIFFNESS
     Dosage: SEE IMAGE
     Route: 048
     Dates: end: 20041001
  2. BEXTRA [Suspect]
     Indication: MUSCULOSKELETAL STIFFNESS
     Dosage: SEE IMAGE
     Route: 048
     Dates: start: 20041001, end: 20041011
  3. ATENOLOL [Concomitant]
  4. MONOPRIL [Concomitant]
  5. AVANDIA [Concomitant]
  6. ZOCOR [Concomitant]
  7. HYDROCHLOROTHIAZIDE [Concomitant]

REACTIONS (5)
  - CARDIAC DISORDER [None]
  - CHONDROPATHY [None]
  - FEELING ABNORMAL [None]
  - PAIN [None]
  - STRESS [None]
